FAERS Safety Report 9380021 (Version 2)
Quarter: 2014Q3

REPORT INFORMATION
  Report Type: Spontaneous
  Country: US (occurrence: US)
  Receive Date: 20130702
  Receipt Date: 20140715
  Transmission Date: 20150326
  Serious: Yes (Other)
  Sender: FDA-Public Use
  Company Number: US-PFIZER INC-2013192065

PATIENT
  Sex: Female

DRUGS (1)
  1. LEVOXYL [Suspect]
     Active Substance: LEVOTHYROXINE SODIUM
     Dosage: UNK, HIGHER STRENGTH THAN PRESCRIBED

REACTIONS (3)
  - Incorrect dose administered [Unknown]
  - Hyperthyroidism [Unknown]
  - Poor quality drug administered [Unknown]
